FAERS Safety Report 4515568-4 (Version None)
Quarter: 2004Q4

REPORT INFORMATION
  Report Type: 
  Country: None (occurrence: None)
  Receive Date: 20041126
  Receipt Date: 20041112
  Transmission Date: 20050328
  Serious: Yes (Other)
  Sender: FDA-Public Use
  Company Number: 2004091687

PATIENT
  Sex: Female
  Weight: 56.6996 kg

DRUGS (5)
  1. NEURONTIN [Suspect]
     Indication: MIGRAINE
     Dosage: (3 IN 1 D)
     Dates: start: 20000101
  2. ESTRADIOL [Suspect]
     Indication: ILL-DEFINED DISORDER
  3. IBUPROFEN [Suspect]
     Indication: HEADACHE
     Dosage: PRN (800 MG)
  4. PROGESTERONE [Suspect]
     Indication: NEOPLASM PROPHYLAXIS
     Dosage: (1 IN 1 WK)
  5. TESTOSTERONE [Suspect]
     Indication: FEELING ABNORMAL
     Dosage: 1 DROP (1 DROP, 1 IN 1 D)

REACTIONS (4)
  - DRUG INTERACTION [None]
  - DRUG TOXICITY [None]
  - OOPHORECTOMY [None]
  - PALPITATIONS [None]
